FAERS Safety Report 6917658-5 (Version None)
Quarter: 2010Q3

REPORT INFORMATION
  Report Type: 
  Country: None (occurrence: None)
  Receive Date: 20100810
  Receipt Date: 20080618
  Transmission Date: 20110219
  Serious: No
  Sender: FDA-Public Use
  Company Number: US-WYE-H04602308

PATIENT
  Sex: Male
  Weight: 67.19 kg

DRUGS (1)
  1. PHENERGAN [Suspect]
     Dosage: UNKNOWN

REACTIONS (1)
  - UNEVALUABLE EVENT [None]
